FAERS Safety Report 22607277 (Version 2)
Quarter: 2023Q2

REPORT INFORMATION
  Report Type: Report from Study
  Country: US (occurrence: US)
  Receive Date: 20230615
  Receipt Date: 20230628
  Transmission Date: 20230722
  Serious: Yes (Other)
  Sender: FDA-Public Use
  Company Number: US-ABBVIE-5290082

PATIENT
  Sex: Male

DRUGS (2)
  1. IMBRUVICA [Suspect]
     Active Substance: IBRUTINIB
     Indication: Mantle cell lymphoma
     Route: 048
     Dates: start: 20230526
  2. IMBRUVICA [Suspect]
     Active Substance: IBRUTINIB
     Indication: Mantle cell lymphoma
     Route: 048
     Dates: start: 202305

REACTIONS (11)
  - Transfusion [Unknown]
  - Neck pain [Unknown]
  - Impaired work ability [Unknown]
  - Insomnia [Unknown]
  - Nerve compression [Unknown]
  - White blood cell count increased [Unknown]
  - Cough [Unknown]
  - Headache [Unknown]
  - Pain [Unknown]
  - Hypersensitivity [Unknown]
  - Red blood cell count abnormal [Unknown]

NARRATIVE: CASE EVENT DATE: 20230101
